FAERS Safety Report 17266112 (Version 1)
Quarter: 2020Q1

REPORT INFORMATION
  Report Type: Spontaneous
  Country: BE (occurrence: BE)
  Receive Date: 20200114
  Receipt Date: 20200114
  Transmission Date: 20200409
  Serious: Yes (Other)
  Sender: FDA-Public Use
  Company Number: BE-SUN PHARMACEUTICAL INDUSTRIES LTD-2019R1-232445

PATIENT
  Age: 46 Year
  Sex: Male

DRUGS (1)
  1. TRAMADOL. [Suspect]
     Active Substance: TRAMADOL
     Indication: PRODUCT USED FOR UNKNOWN INDICATION
     Dosage: UNK
     Route: 065

REACTIONS (5)
  - Pulseless electrical activity [Unknown]
  - Hypokalaemia [Unknown]
  - Multiple organ dysfunction syndrome [Recovered/Resolved]
  - Hypoglycaemia [Unknown]
  - Toxicity to various agents [Unknown]
